FAERS Safety Report 18793576 (Version 1)
Quarter: 2021Q1

REPORT INFORMATION
  Report Type: Spontaneous
  Country: GR (occurrence: GR)
  Receive Date: 20210127
  Receipt Date: 20210127
  Transmission Date: 20210419
  Serious: Yes (Other)
  Sender: FDA-Public Use
  Company Number: GR-PFIZER INC-2021048507

PATIENT
  Sex: Female

DRUGS (1)
  1. XANAX [Suspect]
     Active Substance: ALPRAZOLAM
     Dosage: 4 TABLETS PER DAY

REACTIONS (4)
  - Obsessive-compulsive disorder [Unknown]
  - Incorrect product administration duration [Unknown]
  - Intentional product use issue [Unknown]
  - Neoplasm malignant [Unknown]
